FAERS Safety Report 9769827 (Version 2)
Quarter: 2013Q4

REPORT INFORMATION
  Report Type: Spontaneous
  Country: US (occurrence: US)
  Receive Date: 20131218
  Receipt Date: 20131218
  Transmission Date: 20140711
  Serious: No
  Sender: FDA-Public Use
  Company Number: US-VERTEX PHARMACEUTICALS INC-AE-2011-000532

PATIENT
  Age: 59 Year
  Sex: Male
  Weight: 86.36 kg

DRUGS (8)
  1. INCIVEK [Suspect]
     Indication: HEPATITIS C
     Route: 048
     Dates: start: 20110716
  2. PEGASYS [Concomitant]
     Indication: HEPATITIS C
     Dates: start: 20110716
  3. RIBAPAK [Concomitant]
     Indication: HEPATITIS C
     Dates: start: 20110716
  4. TOPRAL [Concomitant]
  5. LISINOPRIL [Concomitant]
  6. HCTZ [Concomitant]
  7. LANSOPRAZOLE [Concomitant]
  8. ASA [Concomitant]

REACTIONS (8)
  - Haematochezia [Unknown]
  - Anorectal discomfort [Not Recovered/Not Resolved]
  - Pruritus [Recovered/Resolved]
  - Erythema [Recovered/Resolved]
  - Rash maculo-papular [Recovered/Resolved]
  - Diarrhoea [Unknown]
  - Petechiae [Recovered/Resolved]
  - Haemorrhoids [Unknown]
